FAERS Safety Report 18487817 (Version 2)
Quarter: 2021Q2

REPORT INFORMATION
  Report Type: Spontaneous
  Country: US (occurrence: US)
  Receive Date: 20201110
  Receipt Date: 20210628
  Transmission Date: 20210717
  Serious: No
  Sender: FDA-Public Use
  Company Number: NVSC2020US300220

PATIENT
  Sex: Female
  Weight: 66.68 kg

DRUGS (1)
  1. PIQRAY [Suspect]
     Active Substance: ALPELISIB
     Indication: BREAST CANCER
     Dosage: 300 MG, QD
     Route: 048

REACTIONS (3)
  - Nausea [Unknown]
  - Muscle spasms [Unknown]
  - Inappropriate schedule of product administration [Unknown]
